FAERS Safety Report 9765133 (Version 1)
Quarter: 2013Q4

REPORT INFORMATION
  Report Type: Spontaneous
  Country: US (occurrence: None)
  Receive Date: 20131216
  Receipt Date: 20131216
  Transmission Date: 20140711
  Serious: Yes (Life-Threatening, Hospitalization)
  Sender: FDA-Public Use
  Company Number: None

PATIENT
  Age: 57 Year
  Sex: Male
  Weight: 99.79 kg

DRUGS (1)
  1. SEROQUEL [Suspect]
     Dosage: 2, THEN 1, THEN 1 2X 2HR THEN 1 TAKEN BY MOUTH
     Route: 048

REACTIONS (5)
  - Pulmonary embolism [None]
  - Depressed level of consciousness [None]
  - Gout [None]
  - Drug dispensed to wrong patient [None]
  - Wrong drug administered [None]
